FAERS Safety Report 8166046-5 (Version None)
Quarter: 2012Q1

REPORT INFORMATION
  Report Type: 
  Country: None (occurrence: None)
  Receive Date: 20120227
  Receipt Date: 20110311
  Transmission Date: 20120608
  Serious: No
  Sender: FDA-Public Use
  Company Number: US-MYLANLABS-2011S1003974

PATIENT
  Age: 17 Year
  Sex: Male
  Weight: 74.84 kg

DRUGS (1)
  1. AMNESTEEM [Suspect]
     Indication: ACNE CYSTIC
     Route: 048
     Dates: start: 20110214, end: 20110217

REACTIONS (4)
  - PAIN IN EXTREMITY [None]
  - BACK PAIN [None]
  - NIGHT SWEATS [None]
  - COLD SWEAT [None]
